FAERS Safety Report 7444123-1 (Version None)
Quarter: 2011Q2

REPORT INFORMATION
  Report Type: 
  Country: None (occurrence: None)
  Receive Date: 20110419
  Receipt Date: 20110407
  Transmission Date: 20111010
  Serious: Yes (Other)
  Sender: FDA-Public Use
  Company Number: 2011SP012937

PATIENT
  Age: 30 Year
  Sex: Male

DRUGS (3)
  1. PROPOFOL [Concomitant]
  2. ROCURONIUM BROMIDE [Suspect]
     Indication: CROHN'S DISEASE
  3. FENTANYL [Concomitant]

REACTIONS (2)
  - ANAEMIA [None]
  - PERITONEAL HAEMORRHAGE [None]
